FAERS Safety Report 13776420 (Version 1)
Quarter: 2017Q3

REPORT INFORMATION
  Report Type: Spontaneous
  Country: CH (occurrence: CH)
  Receive Date: 20170720
  Receipt Date: 20170720
  Transmission Date: 20171127
  Serious: Yes (Other)
  Sender: FDA-Public Use
  Company Number: CH-TEVA-786627ISR

PATIENT
  Age: 76 Year
  Sex: Female

DRUGS (14)
  1. WELLBUTRIN XL [Concomitant]
     Active Substance: BUPROPION HYDROCHLORIDE
     Dates: start: 20161220, end: 20170319
  2. SERALIN MEPHA [Concomitant]
     Active Substance: SERTRALINE HYDROCHLORIDE
     Dates: start: 20170104, end: 20170120
  3. TEMESTA [Suspect]
     Active Substance: LORAZEPAM
     Dates: start: 20170328, end: 20170330
  4. WELLBUTRIN XL [Concomitant]
     Active Substance: BUPROPION HYDROCHLORIDE
     Dates: start: 20161108, end: 20161207
  5. BRINTELLIX [Concomitant]
     Active Substance: VORTIOXETINE HYDROBROMIDE
     Dates: start: 20170328, end: 20170330
  6. TRANSIPEG [Concomitant]
     Active Substance: POLYETHYLENE GLYCOL 3350
     Dates: start: 20170329, end: 20170329
  7. PANTOPRAZOL MEPHA [Suspect]
     Active Substance: PANTOPRAZOLE SODIUM
     Dates: start: 20170317, end: 20170404
  8. QUILONORM RETARD [Suspect]
     Active Substance: LITHIUM CARBONATE
     Dates: start: 20170210, end: 20170220
  9. VALDOXAN [Suspect]
     Active Substance: AGOMELATINE
     Dates: start: 20161222, end: 20170329
  10. WELLBUTRIN XL [Concomitant]
     Active Substance: BUPROPION HYDROCHLORIDE
     Dates: start: 20161208, end: 20161219
  11. PANTOZOL [Concomitant]
     Active Substance: PANTOPRAZOLE SODIUM
     Dates: end: 20170316
  12. VITARUBIN [Concomitant]
     Active Substance: CYANOCOBALAMIN
     Dates: start: 20161108, end: 20170205
  13. QUILONORM RETARD [Suspect]
     Active Substance: LITHIUM CARBONATE
     Dates: start: 20170221, end: 20170330
  14. QUILONORM RETARD [Suspect]
     Active Substance: LITHIUM CARBONATE
     Dates: start: 20170206, end: 20170209

REACTIONS (5)
  - Disorientation [Recovered/Resolved]
  - Delirium [Recovered/Resolved]
  - Hallucination [Recovered/Resolved]
  - Insomnia [Recovered/Resolved]
  - Confusional state [Recovered/Resolved]

NARRATIVE: CASE EVENT DATE: 20170329
